FAERS Safety Report 6698655-4 (Version None)
Quarter: 2010Q2

REPORT INFORMATION
  Report Type: 
  Country: None (occurrence: None)
  Receive Date: 20100427
  Receipt Date: 20100413
  Transmission Date: 20101027
  Serious: Yes (Life-Threatening, Hospitalization, Other)
  Sender: FDA-Public Use
  Company Number: PHHY2010US07197

PATIENT
  Sex: Female
  Weight: 53.515 kg

DRUGS (3)
  1. ENABLEX [Suspect]
     Indication: URINARY INCONTINENCE
     Dosage: 15 MG, BID
     Route: 048
     Dates: start: 20080101, end: 20090501
  2. ENABLEX [Suspect]
     Dosage: 30 MG (2 TABLETS) DAILY
     Route: 048
     Dates: start: 20090201
  3. OXYBUTYNIN CHLORIDE [Suspect]
     Dosage: 5MG ONCE DAILY
     Dates: start: 20090101

REACTIONS (19)
  - ASTHENIA [None]
  - BRADYCARDIA [None]
  - CARDIAC PACEMAKER INSERTION [None]
  - COMA [None]
  - DISORIENTATION [None]
  - DIZZINESS [None]
  - DRUG INEFFECTIVE [None]
  - DYSPHAGIA [None]
  - DYSSTASIA [None]
  - ENCEPHALITIS [None]
  - FALL [None]
  - FATIGUE [None]
  - HEART RATE IRREGULAR [None]
  - HYPOTENSION [None]
  - MOTOR DYSFUNCTION [None]
  - NERVOUS SYSTEM DISORDER [None]
  - SPEECH DISORDER [None]
  - UNRESPONSIVE TO STIMULI [None]
  - WALKING DISABILITY [None]
